FAERS Safety Report 8942473 (Version 1)
Quarter: 2012Q4

REPORT INFORMATION
  Report Type: 
  Country: US (occurrence: US)
  Receive Date: 20121204
  Receipt Date: 20121204
  Transmission Date: 20130627
  Serious: Yes (Other)
  Sender: FDA-Public Use
  Company Number: US-JNJFOC-20121111552

PATIENT
  Sex: Male
  Weight: 92.08 kg

DRUGS (4)
  1. RISPERDAL [Suspect]
     Indication: ANXIETY
     Route: 048
  2. RISPERDAL [Suspect]
     Indication: ANXIETY
     Route: 048
     Dates: start: 201009, end: 2011
  3. LEXAPRO [Suspect]
     Indication: ANXIETY
     Route: 048
     Dates: start: 201009, end: 201201
  4. RISPERIDONE [Suspect]
     Indication: ANXIETY
     Route: 048
     Dates: start: 2011, end: 201201

REACTIONS (3)
  - Imprisonment [Unknown]
  - Obsessive-compulsive disorder [Recovered/Resolved]
  - Adverse drug reaction [Unknown]
